FAERS Safety Report 4637782-X (Version None)
Quarter: 2005Q2

REPORT INFORMATION
  Report Type: 
  Country: None (occurrence: None)
  Receive Date: 20050328
  Receipt Date: 20050118
  Transmission Date: 20051028
  Serious: No
  Sender: FDA-Public Use
  Company Number: USA050188633

PATIENT
  Age: 45 Year
  Sex: Female
  Weight: 61 kg

DRUGS (4)
  1. STRATTERA [Suspect]
     Indication: ATTENTION DEFICIT/HYPERACTIVITY DISORDER
     Dosage: 100 MG DAY
     Dates: start: 20041101
  2. BUSPAR (BUSIPRONE HYDROCHLORIDE) [Concomitant]
  3. PROZAC [Concomitant]
  4. ATIVAN [Concomitant]

REACTIONS (4)
  - ASTHENIA [None]
  - DECREASED APPETITE [None]
  - HEADACHE [None]
  - NAUSEA [None]
